FAERS Safety Report 11520588 (Version 1)
Quarter: 2015Q3

REPORT INFORMATION
  Report Type: Spontaneous
  Country: US (occurrence: None)
  Receive Date: 20150917
  Receipt Date: 20150917
  Transmission Date: 20151125
  Serious: No
  Sender: FDA-Public Use
  Company Number: None

PATIENT
  Age: 21 Year
  Sex: Male
  Weight: 68.04 kg

DRUGS (3)
  1. CHILDREN^S MULTIVITAMIN [Concomitant]
  2. OMEPRAZOLE (PRILOSEC) [Concomitant]
  3. FEXOFENADINE HYDROCHLORIDE 180 MG PREMIER VALUE [Suspect]
     Active Substance: FEXOFENADINE HYDROCHLORIDE
     Dosage: 180 MG (1 TABLET) ONCE DAILY TAKEN BY MOUTH
     Route: 048
     Dates: start: 20150727, end: 20150915

REACTIONS (18)
  - Decreased appetite [None]
  - Paraesthesia [None]
  - Feeling abnormal [None]
  - Diarrhoea [None]
  - Feeling hot [None]
  - Depressed mood [None]
  - Dyspnoea [None]
  - Nausea [None]
  - Abnormal behaviour [None]
  - Fatigue [None]
  - Headache [None]
  - Flushing [None]
  - Palpitations [None]
  - Chest discomfort [None]
  - Emotional disorder [None]
  - Anxiety [None]
  - Depression [None]
  - Stress [None]
